FAERS Safety Report 18009150 (Version 1)
Quarter: 2020Q3

REPORT INFORMATION
  Report Type: Spontaneous
  Country: US (occurrence: US)
  Receive Date: 20200710
  Receipt Date: 20200710
  Transmission Date: 20201103
  Serious: Yes (Other)
  Sender: FDA-Public Use
  Company Number: US-SAOL THERAPEUTICS-2019SAO00390

PATIENT
  Sex: Male

DRUGS (1)
  1. LIORESAL [Suspect]
     Active Substance: BACLOFEN
     Dosage: 1272 ?G, \DAY
     Route: 037

REACTIONS (2)
  - Muscle spasticity [Unknown]
  - Constipation [Unknown]
